FAERS Safety Report 16297950 (Version 1)
Quarter: 2019Q2

REPORT INFORMATION
  Report Type: Spontaneous
  Country: US (occurrence: US)
  Receive Date: 20190510
  Receipt Date: 20190510
  Transmission Date: 20190711
  Serious: No
  Sender: FDA-Public Use
  Company Number: US-ASTRAZENECA-2019SE67221

PATIENT

DRUGS (3)
  1. BYETTA [Suspect]
     Active Substance: EXENATIDE
     Dosage: 5 MCG/0.02 ML
     Route: 058
  2. ATENOLOL. [Suspect]
     Active Substance: ATENOLOL
     Route: 065
  3. NEXIUM [Suspect]
     Active Substance: ESOMEPRAZOLE MAGNESIUM
     Route: 048

REACTIONS (4)
  - Peripheral swelling [Unknown]
  - Therapeutic product effect decreased [Unknown]
  - Drug hypersensitivity [Unknown]
  - Nausea [Unknown]
